FAERS Safety Report 9286082 (Version 1)
Quarter: 2013Q2

REPORT INFORMATION
  Report Type: Spontaneous
  Country: US (occurrence: US)
  Receive Date: 20130510
  Receipt Date: 20130510
  Transmission Date: 20140414
  Serious: Yes (Other)
  Sender: FDA-Public Use
  Company Number: US-RB-054088-13

PATIENT
  Age: 27 Year
  Sex: Female

DRUGS (2)
  1. MUCINEX MAXIMUM STRENGTH [Suspect]
     Indication: NASAL CONGESTION
     Dosage: LAST TOOK ON 29-APR-2013
     Route: 048
     Dates: start: 20130427
  2. XYZAL [Concomitant]
     Indication: HYPERSENSITIVITY
     Dosage: 5MG EVERY DAY

REACTIONS (3)
  - Epistaxis [Recovered/Resolved]
  - Drug ineffective [Not Recovered/Not Resolved]
  - Off label use [Recovered/Resolved]
